FAERS Safety Report 8577715-7 (Version None)
Quarter: 2012Q3

REPORT INFORMATION
  Report Type: 
  Country: None (occurrence: None)
  Receive Date: 20120808
  Receipt Date: 20120731
  Transmission Date: 20120928
  Serious: Yes (Hospitalization)
  Sender: FDA-Public Use
  Company Number: JP-AMGEN-JPNSP2012048825

PATIENT
  Age: 73 Year
  Sex: Male

DRUGS (3)
  1. CASODEX [Concomitant]
     Dosage: UNKNOWN
     Route: 065
  2. RANMARK [Suspect]
     Indication: METASTASES TO BONE
     Dosage: 120 MG, UNK
     Route: 058
  3. URSO 250 [Concomitant]
     Dosage: UNKNOWN
     Route: 065

REACTIONS (2)
  - PLATELET COUNT DECREASED [None]
  - PYREXIA [None]
